FAERS Safety Report 14966269 (Version 1)
Quarter: 2018Q2

REPORT INFORMATION
  Report Type: Report from Study
  Country: DE (occurrence: DE)
  Receive Date: 20180603
  Receipt Date: 20180603
  Transmission Date: 20180711
  Serious: Yes (Hospitalization)
  Sender: FDA-Public Use
  Company Number: DE-BIOGEN-2018BI00588317

PATIENT
  Age: 56 Year
  Sex: Female
  Weight: 57 kg

DRUGS (1)
  1. PLEGRIDY [Suspect]
     Active Substance: PEGINTERFERON BETA-1A
     Indication: MULTIPLE SCLEROSIS
     Route: 058
     Dates: start: 20170224, end: 201801

REACTIONS (5)
  - Multiple sclerosis relapse [Recovered/Resolved]
  - Nail growth abnormal [Recovered/Resolved]
  - Impaired healing [Recovered/Resolved]
  - Lung disorder [Recovered/Resolved]
  - Skin abrasion [Recovered/Resolved with Sequelae]

NARRATIVE: CASE EVENT DATE: 201711
